FAERS Safety Report 26147174 (Version 1)
Quarter: 2025Q4

REPORT INFORMATION
  Report Type: Spontaneous
  Country: US (occurrence: US)
  Receive Date: 20251211
  Receipt Date: 20251211
  Transmission Date: 20260118
  Serious: Yes (Other)
  Sender: VERTEX
  Company Number: US-VERTEX PHARMACEUTICALS-2025-020989

PATIENT

DRUGS (1)
  1. ELEXACAFTOR\IVACAFTOR\TEZACAFTOR [Suspect]
     Active Substance: ELEXACAFTOR\IVACAFTOR\TEZACAFTOR
     Indication: Cystic fibrosis
     Dosage: UNKNOWN DOSAGE REGIMEN

REACTIONS (14)
  - Suicidal ideation [Unknown]
  - Suicide attempt [Unknown]
  - Cognitive disorder [Unknown]
  - Memory impairment [Unknown]
  - Psychological trauma [Unknown]
  - Eating disorder [Unknown]
  - Procedural anxiety [Unknown]
  - Body dysmorphic disorder [Unknown]
  - Sleep disorder [Unknown]
  - Attention deficit hyperactivity disorder [Unknown]
  - Post-traumatic stress disorder [Unknown]
  - Substance abuse [Unknown]
  - Anxiety [Unknown]
  - Depression [Unknown]
